FAERS Safety Report 4506981-X (Version None)
Quarter: 2004Q4

REPORT INFORMATION
  Report Type: 
  Country: None (occurrence: None)
  Receive Date: 20041117
  Receipt Date: 20041101
  Transmission Date: 20050328
  Serious: Yes (Death, Hospitalization)
  Sender: FDA-Public Use
  Company Number: 9175

PATIENT
  Sex: Male

DRUGS (3)
  1. LEUCOVORIN CALCIUM [Suspect]
     Indication: RECTAL CANCER
     Dosage: 15 MG BID
     Route: 048
  2. UFT [Suspect]
     Indication: RECTAL CANCER
     Dosage: SEE IMAGE
     Route: 048
  3. UFT [Suspect]
     Indication: RECTAL CANCER
     Dosage: SEE IMAGE
     Route: 048

REACTIONS (2)
  - DIARRHOEA [None]
  - FEBRILE NEUTROPENIA [None]
